FAERS Safety Report 7952012-9 (Version None)
Quarter: 2011Q4

REPORT INFORMATION
  Report Type: 
  Country: None (occurrence: None)
  Receive Date: 20111201
  Receipt Date: 20111121
  Transmission Date: 20120403
  Serious: Yes (Other)
  Sender: FDA-Public Use
  Company Number: TW-BRISTOL-MYERS SQUIBB COMPANY-16240525

PATIENT
  Age: 49 Year
  Sex: Female

DRUGS (5)
  1. ZIDOVUDINE [Suspect]
     Indication: HIV INFECTION
     Dates: start: 20090201, end: 20090101
  2. ATAZANAVIR [Suspect]
     Indication: HIV INFECTION
     Dates: start: 20090201, end: 20090101
  3. STAVUDINE [Suspect]
     Indication: HIV INFECTION
     Dates: start: 20090101
  4. EFAVIRENZ [Suspect]
     Indication: HIV INFECTION
     Dates: start: 20090101
  5. LAMIVUDINE(PEPFAR) [Suspect]
     Indication: HIV INFECTION
     Dates: start: 20090201

REACTIONS (4)
  - JAUNDICE [None]
  - IMMUNE RECONSTITUTION SYNDROME [None]
  - RASH [None]
  - MYASTHENIA GRAVIS [None]
